FAERS Safety Report 18022711 (Version 2)
Quarter: 2020Q3

REPORT INFORMATION
  Report Type: Spontaneous
  Country: JP (occurrence: JP)
  Receive Date: 20200714
  Receipt Date: 20200720
  Transmission Date: 20201103
  Serious: Yes (Death, Hospitalization, Other)
  Sender: FDA-Public Use
  Company Number: JP-PFIZER INC-2020268224

PATIENT
  Age: 75 Year
  Sex: Male
  Weight: 47 kg

DRUGS (13)
  1. VONOPRAZAN FUMARATE [Concomitant]
     Active Substance: VONOPRAZAN FUMARATE
     Dosage: 10 MG, 1X/DAY (AFTER BREAKFAST)
     Route: 048
  2. OXYCODONE [Concomitant]
     Active Substance: OXYCODONE
     Indication: PAIN
     Dosage: UNK, AS NEEDED
     Route: 048
  3. HEPARIN SODIUM. [Concomitant]
     Active Substance: HEPARIN SODIUM
     Indication: VENA CAVA THROMBOSIS
     Dosage: UNK (10 AM: 10 UNITS/KG/HR)
     Dates: start: 20180206, end: 20180206
  4. PROCHLORPERAZINE MALEATE. [Concomitant]
     Active Substance: PROCHLORPERAZINE MALEATE
     Dosage: 5 MG, 3X/DAY (AFTER EVERY MEAL)
     Route: 048
  5. CARBOCISTEINE [Concomitant]
     Active Substance: CARBOCYSTEINE
     Dosage: 500 MG, 3X/DAY (AFTER EVERY MEAL)
     Route: 048
  6. FUDOSTEINE [Concomitant]
     Active Substance: FUDOSTEINE
     Dosage: 400 MG, 3X/DAY (AFTER EVERY MEAL)
     Route: 048
  7. CELECOX [Suspect]
     Active Substance: CELECOXIB
     Dosage: 100 MG, 2X/DAY (AFTER BREAKFAST AND SUPPER)
     Route: 048
  8. HEPARIN SODIUM. [Concomitant]
     Active Substance: HEPARIN SODIUM
     Dosage: UNK (14 UNITS/KG/HR)
     Dates: start: 20180207, end: 20180207
  9. HEPARIN SODIUM. [Concomitant]
     Active Substance: HEPARIN SODIUM
     Dosage: UNK (15 UNITS/KG/HR)
     Dates: start: 20180208, end: 201802
  10. HEPARIN SODIUM. [Concomitant]
     Active Substance: HEPARIN SODIUM
     Dosage: UNK (6 PM: 12 UNITS/KG/HR)
     Dates: start: 20180206, end: 20180206
  11. MAGNESIUM OXIDE. [Concomitant]
     Active Substance: MAGNESIUM OXIDE
     Dosage: 660 MG, 3X/DAY (AFTER EVERY MEAL)
     Route: 048
  12. OXYCODONE [Concomitant]
     Active Substance: OXYCODONE
     Dosage: 20 MG, 2X/DAY ( AFTER BREAKFAST AND SUPPER)
     Route: 048
  13. TAZOBACTAM SODIUM AND PIPERACILLIN SODIUM [Concomitant]
     Active Substance: PIPERACILLIN SODIUM\TAZOBACTAM SODIUM
     Indication: PNEUMONIA BACTERIAL
     Dosage: 45 G, 3X/DAY (45 G/8 HR)
     Dates: start: 20180205

REACTIONS (3)
  - Respiratory failure [Fatal]
  - Pneumonia [Unknown]
  - Cardiac failure [Fatal]

NARRATIVE: CASE EVENT DATE: 20180206
